FAERS Safety Report 6000284-2 (Version None)
Quarter: 2008Q4

REPORT INFORMATION
  Report Type: 
  Country: None (occurrence: None)
  Receive Date: 20081126
  Receipt Date: 20080617
  Transmission Date: 20090506
  Serious: Yes (Hospitalization, Other)
  Sender: FDA-Public Use
  Company Number: 2008BH006354

PATIENT
  Age: 80 Year
  Sex: Female
  Weight: 97.5234 kg

DRUGS (17)
  1. DIGOXIN [Suspect]
     Indication: CARDIAC FAILURE CONGESTIVE
     Dosage: 250 UG; EVERY DAY; IV
     Route: 042
     Dates: start: 20080609, end: 20080613
  2. SPIRONOLACTONE [Concomitant]
  3. HYDRALAZINE HCL [Concomitant]
  4. CHLORTHALIDONE [Concomitant]
  5. ISOSORBIDE DINITRATE [Concomitant]
  6. FUROSEMIDE [Concomitant]
  7. FLUOXETINE [Concomitant]
  8. CYPROHEPTADINE HCL [Concomitant]
  9. ZOLPIDEM TARTRATE [Concomitant]
  10. ASPIRIN [Concomitant]
  11. INSULIN GLARGINE [Concomitant]
  12. ATORVASTATIN [Concomitant]
  13. PLASMA PROTEIN FRACTION (HUMAN) [Concomitant]
  14. INSULIN [Concomitant]
  15. OXYCODONE AND ASPIRIN [Concomitant]
  16. LISINOPRIL [Concomitant]
  17. AMLODIPINE [Concomitant]

REACTIONS (2)
  - NAUSEA [None]
  - THERAPEUTIC AGENT TOXICITY [None]
